FAERS Safety Report 21159262 (Version 3)
Quarter: 2022Q3

REPORT INFORMATION
  Report Type: Report from Study
  Country: US (occurrence: US)
  Receive Date: 20220802
  Receipt Date: 20220923
  Transmission Date: 20221026
  Serious: No
  Sender: FDA-Public Use
  Company Number: US-NOVARTISTESTPH-NVSC2022US173168

PATIENT
  Sex: Female

DRUGS (1)
  1. COSENTYX [Suspect]
     Active Substance: SECUKINUMAB
     Indication: Prostatic specific antigen
     Dosage: UNK
     Route: 058

REACTIONS (5)
  - Blister [Unknown]
  - Headache [Unknown]
  - Nasopharyngitis [Unknown]
  - Diarrhoea [Unknown]
  - Drug ineffective [Unknown]
